FAERS Safety Report 21569888 (Version 1)
Quarter: 2022Q4

REPORT INFORMATION
  Report Type: Spontaneous
  Country: AR (occurrence: AR)
  Receive Date: 20221109
  Receipt Date: 20221109
  Transmission Date: 20230113
  Serious: Yes (Hospitalization, Other)
  Sender: FDA-Public Use
  Company Number: AR-SA-SAC20221103002275

PATIENT
  Age: 62 Year
  Sex: Female

DRUGS (8)
  1. SARCLISA [Suspect]
     Active Substance: ISATUXIMAB-IRFC
     Indication: Plasma cell myeloma
     Dosage: 60 MG, QW
     Route: 042
     Dates: start: 20220902, end: 2022
  2. CALCIO BASE [CALCIUM CARBONATE] [Concomitant]
     Dosage: 2 DF, QD
     Route: 048
  3. ENALAPRIL [Concomitant]
     Active Substance: ENALAPRIL
     Dosage: 10 MG, Q12H
     Route: 048
  4. ACYCLOVIR [Concomitant]
     Active Substance: ACYCLOVIR
     Dosage: 400 MG, Q12H
     Route: 048
  5. BACTRIM [Concomitant]
     Active Substance: SULFAMETHOXAZOLE\TRIMETHOPRIM
     Dosage: 1 DF, TIW (1 TABLET / 3 TIMES PER WEEK (MON? WED?FRI)
     Route: 048
  6. ALPRAZOLAM [Concomitant]
     Active Substance: ALPRAZOLAM
     Dosage: 1 MG, QD
     Route: 048
  7. FOLIC ACID [Concomitant]
     Active Substance: FOLIC ACID
     Dosage: 10 MG, QD
     Route: 048
  8. ERITROPOYETINA [EPOETIN ALFA] [Concomitant]
     Dosage: 60 IU, QW

REACTIONS (8)
  - COVID-19 pneumonia [Recovered/Resolved]
  - Bone marrow infiltration [Recovered/Resolved]
  - Haemorrhage [Recovered/Resolved]
  - Cytopenia [Recovered/Resolved]
  - Diabetes mellitus [Not Recovered/Not Resolved]
  - Neutropenia [Recovered/Resolved]
  - Platelet count decreased [Recovering/Resolving]
  - Anaemia [Recovered/Resolved]

NARRATIVE: CASE EVENT DATE: 20220101
